FAERS Safety Report 4863802-3 (Version None)
Quarter: 2005Q4

REPORT INFORMATION
  Report Type: 
  Country: None (occurrence: None)
  Receive Date: 20051222
  Receipt Date: 20050907
  Transmission Date: 20060501
  Serious: No
  Sender: FDA-Public Use
  Company Number: US-GLAXOSMITHKLINE-A0573296A

PATIENT
  Age: 76 Year
  Sex: Female

DRUGS (2)
  1. FLONASE [Suspect]
     Dosage: 1SPR TWICE PER DAY
     Route: 045
  2. METOPROLOL [Concomitant]

REACTIONS (3)
  - EAR PAIN [None]
  - JOINT CREPITATION [None]
  - PHARMACEUTICAL PRODUCT COMPLAINT [None]
